FAERS Safety Report 21424870 (Version 2)
Quarter: 2022Q4

REPORT INFORMATION
  Report Type: Spontaneous
  Country: US (occurrence: US)
  Receive Date: 20221008
  Receipt Date: 20221012
  Transmission Date: 20230113
  Serious: No
  Sender: FDA-Public Use
  Company Number: US-UNITED THERAPEUTICS-UNT-2022-023149

PATIENT
  Sex: Female
  Weight: 58.957 kg

DRUGS (3)
  1. REMODULIN [Suspect]
     Active Substance: TREPROSTINIL
     Indication: Pulmonary arterial hypertension
     Dosage: UNK, CONTINUING
     Route: 058
     Dates: start: 20220907
  2. REMODULIN [Suspect]
     Active Substance: TREPROSTINIL
     Dosage: 0.010 ?G/KG (PHARMACY FILLED; PRE-FILLED WITH 2 ML PER CASSETTE AT A RATE OF 16 MCL PER HOUR.), CONT
     Route: 058
     Dates: start: 202209
  3. OPSUMIT [Concomitant]
     Active Substance: MACITENTAN
     Indication: Product used for unknown indication
     Route: 065

REACTIONS (10)
  - Dizziness [Recovered/Resolved]
  - Device wireless communication issue [Recovered/Resolved]
  - Device temperature issue [Unknown]
  - Device leakage [Unknown]
  - Device wireless communication issue [Unknown]
  - Device failure [Unknown]
  - Device leakage [Unknown]
  - Device malfunction [Unknown]
  - Device temperature issue [Unknown]
  - Device leakage [Unknown]

NARRATIVE: CASE EVENT DATE: 20220101
